FAERS Safety Report 18968511 (Version 2)
Quarter: 2021Q2

REPORT INFORMATION
  Report Type: Spontaneous
  Country: JP (occurrence: JP)
  Receive Date: 20210304
  Receipt Date: 20210406
  Transmission Date: 20210717
  Serious: Yes (Hospitalization)
  Sender: FDA-Public Use
  Company Number: JP-MYLANLABS-2021M1012667

PATIENT
  Age: 40 Year
  Sex: Male
  Weight: 58.4 kg

DRUGS (1)
  1. ERYTHROCIN DRY SYRUP W 20% [Suspect]
     Active Substance: ERYTHROMYCIN
     Indication: MYOTONIC DYSTROPHY
     Dosage: TWICE DAILY (MORNING AND EVENING) (500 MG OR 800 MG DAILY)
     Route: 048
     Dates: start: 20210125

REACTIONS (3)
  - Off label use [Unknown]
  - Pneumonia [Recovered/Resolved]
  - Inappropriate schedule of product administration [Unknown]

NARRATIVE: CASE EVENT DATE: 20210222
